FAERS Safety Report 10157666 (Version 1)
Quarter: 2014Q2

REPORT INFORMATION
  Report Type: Spontaneous
  Country: US (occurrence: US)
  Receive Date: 20140507
  Receipt Date: 20140507
  Transmission Date: 20141212
  Serious: No
  Sender: FDA-Public Use
  Company Number: US-B.I. PHARMACEUTICALS,INC./RIDGEFIELD-2014-BI-19643BP

PATIENT
  Sex: Male
  Weight: 102 kg

DRUGS (7)
  1. SPIRIVA [Suspect]
     Indication: ASTHMA
     Dosage: 18 MCG
     Route: 055
     Dates: start: 2012
  2. TOPROL [Concomitant]
     Indication: HYPERTENSION
     Route: 048
  3. LIPITOR [Concomitant]
     Indication: BLOOD CHOLESTEROL INCREASED
     Route: 048
  4. FUROSEMIDE [Concomitant]
     Route: 048
  5. TAMSULOSIN [Concomitant]
     Indication: PROSTATIC DISORDER
     Route: 048
  6. LOSARTAN [Concomitant]
     Indication: HYPERTENSION
     Route: 048
  7. NATEGLINIDE [Concomitant]
     Indication: BLOOD CHOLESTEROL INCREASED
     Route: 048

REACTIONS (3)
  - Urticaria [Recovered/Resolved]
  - Cough [Not Recovered/Not Resolved]
  - Off label use [Unknown]
